FAERS Safety Report 10884522 (Version 1)
Quarter: 2015Q1

REPORT INFORMATION
  Report Type: Spontaneous
  Country: US (occurrence: US)
  Receive Date: 20150304
  Receipt Date: 20150304
  Transmission Date: 20150721
  Serious: No
  Sender: FDA-Public Use
  Company Number: US-B.I. PHARMACEUTICALS,INC./RIDGEFIELD-2015-BI-09102BP

PATIENT
  Age: 85 Year
  Sex: Female
  Weight: 59 kg

DRUGS (10)
  1. AMLODOPINE [Concomitant]
     Indication: HYPERTENSION
     Dosage: 10 MG
     Route: 048
  2. COMBIVENT [Suspect]
     Active Substance: ALBUTEROL SULFATE\IPRATROPIUM BROMIDE
     Indication: ASTHMA
     Dosage: STRENGTH: 18 MCG / 103 MCG; DAILY DOSE: 144 MCG/ 824 MCG
     Route: 055
     Dates: start: 201406
  3. OMEPRAZOLE. [Concomitant]
     Active Substance: OMEPRAZOLE
     Indication: GASTROOESOPHAGEAL REFLUX DISEASE
     Dosage: 20 MG
     Route: 048
     Dates: start: 20150113
  4. TRIPLE FLEX [Concomitant]
     Indication: ROUTINE HEALTH MAINTENANCE
     Dosage: 3 ANZ
     Route: 048
  5. CITRACAL CALCIUM [Concomitant]
     Indication: NEPHROLITHIASIS
     Dosage: 5 ANZ
     Route: 048
  6. ALBUTEROL SULFATE. [Concomitant]
     Active Substance: ALBUTEROL SULFATE
     Indication: ASTHMA
     Dosage: 8 MG
     Route: 048
     Dates: start: 2012
  7. MONTELUKAST SODIUM. [Concomitant]
     Active Substance: MONTELUKAST SODIUM
     Indication: ASTHMA
     Dosage: 10 MG
     Route: 048
     Dates: start: 2012
  8. DOXAZOSIN [Concomitant]
     Active Substance: DOXAZOSIN\DOXAZOSIN MESYLATE
     Indication: HYPERTENSION
     Dosage: 10 MG
     Route: 048
     Dates: start: 2013
  9. PRESERVISION [Concomitant]
     Indication: ROUTINE HEALTH MAINTENANCE
     Dosage: 2 ANZ
     Route: 048
  10. NONI [Concomitant]
     Indication: PRODUCT USED FOR UNKNOWN INDICATION
     Dosage: STRENGTH: 1 OUNCE; DAILY DOSE: 1 OUNCE
     Route: 050

REACTIONS (2)
  - Product use issue [Unknown]
  - Cough [Not Recovered/Not Resolved]

NARRATIVE: CASE EVENT DATE: 201406
